FAERS Safety Report 5238038-7 (Version None)
Quarter: 2007Q1

REPORT INFORMATION
  Report Type: 
  Country: None (occurrence: None)
  Receive Date: 20070214
  Receipt Date: 20070204
  Transmission Date: 20070707
  Serious: Yes (Other)
  Sender: FDA-Public Use
  Company Number: DE-PFIZER INC-2007010898

PATIENT
  Sex: Male

DRUGS (3)
  1. HYDROXYZINE HYDROCHLORIDE (TABLET) [Suspect]
     Dosage: TEXT:8 DF
     Route: 048
  2. CHLORPROTHIXENE [Concomitant]
     Dosage: DAILY DOSE:400MG
     Route: 048
  3. QUETIAPINE FUMARATE [Concomitant]
     Dosage: DAILY DOSE:1.7GRAM
     Route: 048

REACTIONS (3)
  - DIZZINESS [None]
  - INTENTIONAL OVERDOSE [None]
  - SUICIDE ATTEMPT [None]
